FAERS Safety Report 16611430 (Version 1)
Quarter: 2019Q3

REPORT INFORMATION
  Report Type: Spontaneous
  Country: US (occurrence: US)
  Receive Date: 20190722
  Receipt Date: 20190722
  Transmission Date: 20191004
  Serious: No
  Sender: FDA-Public Use
  Company Number: US-PFIZER INC-2019101954

PATIENT
  Age: 44 Year
  Sex: Female
  Weight: 67 kg

DRUGS (18)
  1. TAXOTERE [Suspect]
     Active Substance: DOCETAXEL
     Indication: INVASIVE DUCTAL BREAST CARCINOMA
     Dosage: 135 MG, CYCLIC (EVERY THREE WEEKS, 6 CYCLES)
     Dates: start: 20170307, end: 20170620
  2. ZINC. [Concomitant]
     Active Substance: ZINC
     Dosage: UNK
     Dates: start: 2009
  3. IBUPROFEN (OTC) [Concomitant]
     Active Substance: IBUPROFEN
     Dosage: UNK
     Dates: start: 2009
  4. TYLENOL (OTC) [Concomitant]
     Dosage: UNK
     Dates: start: 2009
  5. HERCEPTIN [Concomitant]
     Active Substance: TRASTUZUMAB
     Indication: HORMONE THERAPY
  6. COQ 10 [Concomitant]
     Active Substance: UBIDECARENONE
     Dosage: UNK
     Dates: start: 2009
  7. ATIVAN [Concomitant]
     Active Substance: LORAZEPAM
     Dosage: UNK
  8. ZOLOFT [Concomitant]
     Active Substance: SERTRALINE HYDROCHLORIDE
     Dosage: UNK
  9. TAMOXIFEN [Concomitant]
     Active Substance: TAMOXIFEN
     Dosage: UNK
     Dates: start: 201807
  10. MOBIC [Concomitant]
     Active Substance: MELOXICAM
     Dosage: UNK
  11. PARAPLATIN [Concomitant]
     Active Substance: CARBOPLATIN
     Indication: CHEMOTHERAPY
     Dosage: UNK, CYCLIC (EVERY 03 WEEKS, 6 CYCLES)
  12. DOCETAXEL. [Suspect]
     Active Substance: DOCETAXEL
     Indication: INVASIVE DUCTAL BREAST CARCINOMA
     Dosage: 135 MG, CYCLIC (EVERY THREE WEEKS, 6 CYCLES)
     Dates: start: 20170307, end: 20170620
  13. HERCEPTIN [Concomitant]
     Active Substance: TRASTUZUMAB
     Indication: CHEMOTHERAPY
     Dosage: UNK, CYCLIC (EVERY 03 WEEKS, 6 CYCLES)
     Dates: start: 20170307, end: 20180402
  14. VITAMIN D (OTC) [Concomitant]
     Dosage: UNK
     Dates: start: 2009
  15. EXEMESTANE. [Concomitant]
     Active Substance: EXEMESTANE
     Dosage: UNK
     Dates: start: 201808, end: 201810
  16. SERTRALINE [Concomitant]
     Active Substance: SERTRALINE HYDROCHLORIDE
     Dosage: UNK
     Dates: start: 2015, end: 2017
  17. FOLIC ACID. [Concomitant]
     Active Substance: FOLIC ACID
     Dosage: UNK
     Dates: start: 2009
  18. COMPAZINE [Concomitant]
     Active Substance: PROCHLORPERAZINE MALEATE
     Dosage: UNK

REACTIONS (7)
  - Alopecia [Not Recovered/Not Resolved]
  - Hair texture abnormal [Not Recovered/Not Resolved]
  - Hair disorder [Not Recovered/Not Resolved]
  - Madarosis [Not Recovered/Not Resolved]
  - Anxiety [Unknown]
  - Depression [Unknown]
  - Hair colour changes [Not Recovered/Not Resolved]

NARRATIVE: CASE EVENT DATE: 201703
